FAERS Safety Report 8775115 (Version 2)
Quarter: 2013Q1

REPORT INFORMATION
  Report Type: Spontaneous
  Country: JP (occurrence: JP)
  Receive Date: 20120910
  Receipt Date: 20130329
  Transmission Date: 20140127
  Serious: Yes (Disabling, Other)
  Sender: FDA-Public Use
  Company Number: JP-009507513-1208JPN011230

PATIENT
  Sex: 0

DRUGS (2)
  1. PEGINTRON [Suspect]
     Dosage: 120 MICROGRAM, QW
     Route: 058
     Dates: start: 2012
  2. REBETOL [Suspect]
     Dosage: 400 MG, BID
     Route: 048
     Dates: start: 2012

REACTIONS (2)
  - Injection site induration [Not Recovered/Not Resolved]
  - Neurotransmitter level altered [Not Recovered/Not Resolved]
